FAERS Safety Report 6306797-8 (Version None)
Quarter: 2009Q3

REPORT INFORMATION
  Report Type: 
  Country: None (occurrence: None)
  Receive Date: 20090812
  Receipt Date: 20090806
  Transmission Date: 20100115
  Serious: Yes (Death)
  Sender: FDA-Public Use
  Company Number: US-ELI_LILLY_AND_COMPANY-US200905000919

PATIENT
  Sex: Female

DRUGS (8)
  1. XIGRIS [Suspect]
     Indication: SEPSIS
     Dosage: UNK, UNK
     Dates: start: 20090428, end: 20090501
  2. ANTIBIOTICS [Concomitant]
     Indication: URINARY TRACT INFECTION
     Dates: start: 20090401
  3. LEVOPHED [Concomitant]
     Dosage: UNK, EVERY HOUR
     Route: 042
     Dates: start: 20090401
  4. VASOPRESSIN [Concomitant]
     Dosage: UNK, EVERY HOUR
     Route: 042
     Dates: start: 20090401
  5. INSULIN [Concomitant]
     Dosage: UNK, EVERY HOUR
     Route: 042
     Dates: start: 20090401
  6. ATIVAN [Concomitant]
     Dosage: UNK, EVERY HOUR
     Route: 042
     Dates: start: 20090401
  7. NORCURON [Concomitant]
     Dosage: UNK, EVERY HOUR
     Route: 042
     Dates: start: 20090401
  8. OXYGEN [Concomitant]
     Indication: RESPIRATORY DISTRESS
     Dates: start: 20090425

REACTIONS (2)
  - CARDIAC FAILURE [None]
  - SEPSIS [None]
